FAERS Safety Report 5336888-X (Version None)
Quarter: 2007Q2

REPORT INFORMATION
  Report Type: 
  Country: None (occurrence: None)
  Receive Date: 20070529
  Receipt Date: 20070521
  Transmission Date: 20071010
  Serious: Yes (Other)
  Sender: FDA-Public Use
  Company Number: AU-AVENTIS-200621743GDDC

PATIENT
  Age: 88 Year
  Sex: Female

DRUGS (22)
  1. LANTUS [Suspect]
     Route: 058
     Dates: start: 20060904, end: 20070115
  2. AUTOPEN 24 [Suspect]
  3. LIPEX                              /00848101/ [Concomitant]
  4. DIAMICRON [Concomitant]
  5. DILANTIN [Concomitant]
  6. DIURETICS [Concomitant]
  7. ALPRAZOLAM [Concomitant]
  8. THYROXIN [Concomitant]
  9. OSTELIN                            /00107901/ [Concomitant]
  10. CALTRATE                           /00108001/ [Concomitant]
  11. GLICLAZIDE [Concomitant]
  12. ACTOS [Concomitant]
  13. MOVICOL                            /01053601/ [Concomitant]
     Dosage: DOSE: 1 SACHET
  14. FRUSEMIDE [Concomitant]
  15. ENALAPRIL [Concomitant]
  16. OMEPRAZOLE [Concomitant]
  17. SIMVASTATIN [Concomitant]
  18. GTN SPRAY [Concomitant]
  19. NITROGLYCERIN [Concomitant]
  20. PANAMAX [Concomitant]
  21. POLY TEARS [Concomitant]
  22. ALDACTONE [Concomitant]

REACTIONS (1)
  - CARDIAC FAILURE [None]
